FAERS Safety Report 8426794-6 (Version None)
Quarter: 2012Q2

REPORT INFORMATION
  Report Type: 
  Country: None (occurrence: None)
  Receive Date: 20120611
  Receipt Date: 20120607
  Transmission Date: 20120825
  Serious: Yes (Other)
  Sender: FDA-Public Use
  Company Number: PHEH2012US007288

PATIENT
  Sex: Female
  Weight: 47.619 kg

DRUGS (1)
  1. GILENYA [Suspect]
     Indication: MULTIPLE SCLEROSIS
     Dosage: 0.5 MG, QD
     Route: 048
     Dates: start: 20120328

REACTIONS (5)
  - BLOOD GLUCOSE DECREASED [None]
  - BACK PAIN [None]
  - FATIGUE [None]
  - RASH [None]
  - BLOOD PRESSURE DECREASED [None]
